APPROVED DRUG PRODUCT: CHLOROQUINE PHOSPHATE
Active Ingredient: CHLOROQUINE PHOSPHATE
Strength: 500MG
Dosage Form/Route: TABLET;ORAL
Application: A214756 | Product #001 | TE Code: AA
Applicant: SUVEN PHARMACEUTICALS LTD
Approved: Sep 3, 2021 | RLD: No | RS: No | Type: RX